FAERS Safety Report 8267182-5 (Version None)
Quarter: 2012Q2

REPORT INFORMATION
  Report Type: 
  Country: None (occurrence: None)
  Receive Date: 20120409
  Receipt Date: 20120404
  Transmission Date: 20120825
  Serious: Yes (Hospitalization, Other)
  Sender: FDA-Public Use
  Company Number: US-PFIZER INC-2012085445

PATIENT
  Age: 58 Year
  Sex: Male
  Weight: 107 kg

DRUGS (4)
  1. CIPROFLOXACIN HCL [Suspect]
     Indication: CHILLS
     Dosage: UNK
  2. ZITHROMAX [Suspect]
     Indication: CHILLS
     Dosage: UNK
  3. GABAPENTIN [Suspect]
     Indication: ANXIETY
     Dosage: 300 MG, 3X/DAY
     Dates: start: 20090101
  4. PRILOSEC [Concomitant]
     Indication: HIATUS HERNIA
     Dosage: 20 MG, 2X/DAY

REACTIONS (7)
  - CHILLS [None]
  - PULMONARY OEDEMA [None]
  - BODY TEMPERATURE DECREASED [None]
  - DRUG INEFFECTIVE [None]
  - PNEUMONIA [None]
  - RESPIRATORY DISORDER [None]
  - PULMONARY MASS [None]
